FAERS Safety Report 7197601-7 (Version None)
Quarter: 2010Q4

REPORT INFORMATION
  Report Type: 
  Country: None (occurrence: None)
  Receive Date: 20101213
  Receipt Date: 20101129
  Transmission Date: 20110411
  Serious: Yes (Other)
  Sender: FDA-Public Use
  Company Number: 2010AP002547

PATIENT
  Sex: Female

DRUGS (7)
  1. ALENDRONATE SODIUM [Suspect]
     Indication: OSTEOPOROSIS PROPHYLAXIS
     Dosage: 70 MG; QW, PO
     Route: 048
     Dates: start: 20101104
  2. CITALOPRAM (CITALOPRAM) [Concomitant]
  3. LEVOTHYROXINE SODIUM [Concomitant]
  4. LORAZEPAM [Concomitant]
  5. OMEPRAZOLE [Concomitant]
  6. MIRTAZAPINE [Concomitant]
  7. ZOPICLONE (ZOPICLONE) [Concomitant]

REACTIONS (6)
  - ABDOMINAL DISCOMFORT [None]
  - GASTRIC PH DECREASED [None]
  - HYPOAESTHESIA [None]
  - OEDEMA PERIPHERAL [None]
  - PAIN IN EXTREMITY [None]
  - PARAESTHESIA [None]
